FAERS Safety Report 5080461-8 (Version None)
Quarter: 2006Q3

REPORT INFORMATION
  Report Type: 
  Country: None (occurrence: None)
  Receive Date: 20060809
  Receipt Date: 20060803
  Transmission Date: 20061208
  Serious: Yes (Other)
  Sender: FDA-Public Use
  Company Number: 2006P1000391

PATIENT
  Sex: Male
  Weight: 90 kg

DRUGS (2)
  1. RETEPLASE  (RETEPLASE ) [Suspect]
     Indication: ACUTE MYOCARDIAL INFARCTION
     Dates: start: 20060725, end: 20060725
  2. REOPRO [Suspect]
     Indication: ACUTE MYOCARDIAL INFARCTION
     Dates: start: 20060725, end: 20060725

REACTIONS (1)
  - THROMBOCYTOPENIA [None]
